FAERS Safety Report 15036095 (Version 2)
Quarter: 2018Q3

REPORT INFORMATION
  Report Type: Spontaneous
  Country: US (occurrence: US)
  Receive Date: 20180620
  Receipt Date: 20180705
  Transmission Date: 20181010
  Serious: No
  Sender: FDA-Public Use
  Company Number: US-SA-2018SA158151

PATIENT
  Age: 65 Year
  Sex: Female

DRUGS (2)
  1. EFFIENT [Concomitant]
     Active Substance: PRASUGREL HYDROCHLORIDE
  2. PRALUENT [Suspect]
     Active Substance: ALIROCUMAB
     Indication: BLOOD CHOLESTEROL
     Dosage: 75 MG, QOW
     Route: 058
     Dates: start: 20180510, end: 20180524

REACTIONS (11)
  - Vomiting [Recovered/Resolved]
  - Abdominal discomfort [Unknown]
  - Condition aggravated [Unknown]
  - Glossodynia [Unknown]
  - Drug dose omission [Unknown]
  - Peripheral swelling [Unknown]
  - Weight increased [Unknown]
  - Tongue discolouration [Unknown]
  - Nausea [Recovered/Resolved]
  - Ataxia [Unknown]
  - Diarrhoea [Recovered/Resolved]

NARRATIVE: CASE EVENT DATE: 201805
